FAERS Safety Report 9744185 (Version 1)
Quarter: 2013Q4

REPORT INFORMATION
  Report Type: Spontaneous
  Country: AU (occurrence: AU)
  Receive Date: 20131210
  Receipt Date: 20131210
  Transmission Date: 20140711
  Serious: Yes (Death)
  Sender: FDA-Public Use
  Company Number: AU-PURDUE-USA-2013-0109365

PATIENT
  Age: 78 Year
  Sex: Female

DRUGS (2)
  1. MORPHINE SULFATE (SIMILAR TO NDA 19-516) [Suspect]
     Indication: PAIN
     Route: 065
  2. ANTITHROMBOTIC AGENTS [Suspect]
     Indication: THROMBOSIS PROPHYLAXIS

REACTIONS (8)
  - Overdose [Fatal]
  - Head injury [Fatal]
  - Fall [Fatal]
  - Cerebral haemorrhage [Fatal]
  - Internal injury [Fatal]
  - Arterial stenosis [Fatal]
  - Diaphragmatic injury [Fatal]
  - Pneumonia [Fatal]
